FAERS Safety Report 4795379-5 (Version None)
Quarter: 2005Q4

REPORT INFORMATION
  Report Type: 
  Country: None (occurrence: None)
  Receive Date: 20051012
  Receipt Date: 20051004
  Transmission Date: 20060501
  Serious: Yes (Hospitalization)
  Sender: FDA-Public Use
  Company Number: 2005SE05614

PATIENT
  Age: 11769 Day
  Sex: Female
  Weight: 80 kg

DRUGS (1)
  1. QUETIAPINE FUMARATE [Suspect]
     Indication: MENTAL DISORDER
     Route: 048
     Dates: start: 20050606, end: 20050926

REACTIONS (1)
  - PSYCHOTIC DISORDER [None]
